FAERS Safety Report 17605298 (Version 1)
Quarter: 2020Q1

REPORT INFORMATION
  Report Type: Spontaneous
  Country: IR (occurrence: US)
  Receive Date: 20200331
  Receipt Date: 20200331
  Transmission Date: 20200409
  Serious: Yes (Hospitalization)
  Sender: FDA-Public Use
  Company Number: IR-SA-2020SA077528

PATIENT
  Age: 66 Year
  Sex: Female
  Weight: 73 kg

DRUGS (14)
  1. OLANZAPINE. [Concomitant]
     Active Substance: OLANZAPINE
     Indication: NAUSEA
  2. OLANZAPINE. [Concomitant]
     Active Substance: OLANZAPINE
     Indication: DECREASED APPETITE
     Dosage: UNK
     Dates: start: 20160930
  3. OXYCODONE [Concomitant]
     Active Substance: OXYCODONE
     Indication: BACK PAIN
     Dosage: UNK
     Dates: start: 20170509
  4. ESOMEPRAZOLE. [Concomitant]
     Active Substance: ESOMEPRAZOLE MAGNESIUM
     Indication: DYSPEPSIA
     Dosage: UNK
     Dates: start: 20160603
  5. LOVENOX [Suspect]
     Active Substance: ENOXAPARIN SODIUM
     Indication: DEEP VEIN THROMBOSIS
     Dosage: 80 MG, BID
     Route: 058
     Dates: start: 20170504, end: 20170617
  6. DRONABINOL. [Concomitant]
     Active Substance: DRONABINOL
     Dosage: UNK
     Dates: start: 20170509
  7. LOVENOX [Suspect]
     Active Substance: ENOXAPARIN SODIUM
     Indication: PULMONARY EMBOLISM
  8. MAGNESIUM GLUCONATE [Concomitant]
     Active Substance: MAGNESIUM GLUCONATE
     Indication: HYPOMAGNESAEMIA
     Dosage: UNK
     Dates: start: 20161118
  9. OLANZAPINE. [Concomitant]
     Active Substance: OLANZAPINE
     Indication: DEPRESSION
  10. ACETAMINOPHEN. [Concomitant]
     Active Substance: ACETAMINOPHEN
     Indication: BACK PAIN
     Dosage: UNK
     Dates: start: 20170505
  11. AVELUMAB [Suspect]
     Active Substance: AVELUMAB
     Indication: RENAL CELL CARCINOMA
     Dosage: 754 MG EVERY 2 WEEK 10 (CONTINUED)
     Route: 042
     Dates: start: 20160728, end: 20170421
  12. AXITINIB [Suspect]
     Active Substance: AXITINIB
     Indication: RENAL CELL CARCINOMA
     Dosage: 2 MG, QD (CONTINUED)
     Route: 048
     Dates: start: 20160728, end: 20170505
  13. OLANZAPINE. [Concomitant]
     Active Substance: OLANZAPINE
     Indication: INSOMNIA
  14. POTASSIUM CHLORIDE. [Concomitant]
     Active Substance: POTASSIUM CHLORIDE
     Indication: HYPOKALAEMIA
     Dosage: UNK
     Dates: start: 20161118

REACTIONS (3)
  - Muscular weakness [Unknown]
  - Anaemia [Unknown]
  - Haematoma [Unknown]

NARRATIVE: CASE EVENT DATE: 20170421
